FAERS Safety Report 13644246 (Version 7)
Quarter: 2023Q2

REPORT INFORMATION
  Report Type: Spontaneous
  Country: US (occurrence: US)
  Receive Date: 20170612
  Receipt Date: 20230602
  Transmission Date: 20230721
  Serious: Yes (Death, Other)
  Sender: FDA-Public Use
  Company Number: US-PFIZER INC-2017254293

PATIENT
  Age: 71 Year
  Sex: Female
  Weight: 90 kg

DRUGS (2)
  1. XELJANZ [Suspect]
     Active Substance: TOFACITINIB CITRATE
     Indication: Arthritis
     Dosage: 5 MG, 2X/DAY (TWICE A DAY)
     Route: 048
  2. METANX [Concomitant]
     Active Substance: LEVOMEFOLATE CALCIUM\METHYLCOBALAMIN\PYRIDOXAL PHOSPHATE ANHYDROUS
     Indication: Nodule
     Dosage: 1 CAPSULE, 2X/DAY (EVERY 12 HOURS)
     Route: 048

REACTIONS (8)
  - Dementia [Fatal]
  - Liver disorder [Fatal]
  - Dementia Alzheimer^s type [Fatal]
  - Neurodegenerative disorder [Fatal]
  - Encephalopathy [Fatal]
  - Non-alcoholic steatohepatitis [Fatal]
  - Chronic kidney disease [Fatal]
  - Drug ineffective [Not Recovered/Not Resolved]
